FAERS Safety Report 13413129 (Version 2)
Quarter: 2017Q4

REPORT INFORMATION
  Report Type: Spontaneous
  Country: US (occurrence: US)
  Receive Date: 20170406
  Receipt Date: 20171123
  Transmission Date: 20180320
  Serious: No
  Sender: FDA-Public Use
  Company Number: US-JNJFOC-20170310927

PATIENT
  Sex: Male

DRUGS (42)
  1. RISPERDAL [Suspect]
     Active Substance: RISPERIDONE
     Indication: DISTURBANCE IN ATTENTION
     Dosage: VARYING DOSES OF 01 MG AND 02 MG AND VARYING FREQUENCIES
     Route: 048
     Dates: start: 19990920, end: 20080929
  2. RISPERDAL [Suspect]
     Active Substance: RISPERIDONE
     Indication: IMPULSIVE BEHAVIOUR
     Dosage: VARYING DOSES OF UNSPECIFIED DOSE AND 02 MG VARYING FREQUENCIES INCLUDED (UNSPECIFIED DOSE AND BID)
     Route: 048
     Dates: start: 20100809, end: 20101204
  3. RISPERIDONE. [Suspect]
     Active Substance: RISPERIDONE
     Indication: IMPULSIVE BEHAVIOUR
     Route: 048
     Dates: end: 20120127
  4. RISPERIDONE. [Suspect]
     Active Substance: RISPERIDONE
     Indication: PSYCHOMOTOR HYPERACTIVITY
     Route: 048
     Dates: start: 19990920
  5. RISPERIDONE. [Suspect]
     Active Substance: RISPERIDONE
     Indication: DISTURBANCE IN ATTENTION
     Route: 065
     Dates: start: 20090512, end: 20090918
  6. RISPERIDONE. [Suspect]
     Active Substance: RISPERIDONE
     Indication: IMPULSIVE BEHAVIOUR
     Route: 065
     Dates: start: 20110812, end: 20111117
  7. RISPERDAL [Suspect]
     Active Substance: RISPERIDONE
     Indication: IMPULSIVE BEHAVIOUR
     Route: 048
     Dates: start: 20091019
  8. RISPERDAL [Suspect]
     Active Substance: RISPERIDONE
     Indication: PSYCHOMOTOR HYPERACTIVITY
     Dosage: VARYING DOSES OF UNSPECIFIED DOSE AND 02 MG VARYING FREQUENCIES INCLUDED (UNSPECIFIED DOSE AND BID)
     Route: 048
     Dates: start: 20110701, end: 20110713
  9. RISPERIDONE. [Suspect]
     Active Substance: RISPERIDONE
     Indication: IMPULSIVE BEHAVIOUR
     Route: 048
     Dates: start: 19990920
  10. RISPERIDONE. [Suspect]
     Active Substance: RISPERIDONE
     Indication: IMPULSIVE BEHAVIOUR
     Dosage: VARYING DOSES OF 01 MG AND 02 MG
     Route: 065
     Dates: start: 20091117, end: 20100717
  11. RISPERIDONE. [Suspect]
     Active Substance: RISPERIDONE
     Indication: PSYCHOMOTOR HYPERACTIVITY
     Route: 065
     Dates: start: 20090512, end: 20090918
  12. RISPERIDONE. [Suspect]
     Active Substance: RISPERIDONE
     Indication: PSYCHOMOTOR HYPERACTIVITY
     Route: 048
     Dates: end: 20120127
  13. RISPERIDONE. [Suspect]
     Active Substance: RISPERIDONE
     Indication: DISTURBANCE IN ATTENTION
     Route: 065
     Dates: start: 20110114, end: 20110529
  14. RISPERIDONE. [Suspect]
     Active Substance: RISPERIDONE
     Indication: IMPULSIVE BEHAVIOUR
     Route: 065
     Dates: start: 20110114, end: 20110529
  15. RISPERIDONE. [Suspect]
     Active Substance: RISPERIDONE
     Indication: IMPULSIVE BEHAVIOUR
     Route: 065
     Dates: start: 20090512, end: 20090918
  16. RISPERIDONE. [Suspect]
     Active Substance: RISPERIDONE
     Indication: PSYCHOMOTOR HYPERACTIVITY
     Route: 065
     Dates: start: 20110114, end: 20110529
  17. RISPERDAL [Suspect]
     Active Substance: RISPERIDONE
     Indication: DISTURBANCE IN ATTENTION
     Dosage: VARYING DOSES OF UNSPECIFIED DOSE AND 02 MG VARYING FREQUENCIES INCLUDED (UNSPECIFIED DOSE AND BID)
     Route: 048
     Dates: start: 20110701, end: 20110713
  18. RISPERDAL [Suspect]
     Active Substance: RISPERIDONE
     Indication: DISTURBANCE IN ATTENTION
     Dosage: VARYING DOSES OF UNSPECIFIED DOSE AND 02 MG VARYING FREQUENCIES INCLUDED (UNSPECIFIED DOSE AND BID)
     Route: 048
     Dates: start: 20100809, end: 20101204
  19. RISPERDAL [Suspect]
     Active Substance: RISPERIDONE
     Indication: PSYCHOMOTOR HYPERACTIVITY
     Dosage: VARYING DOSES OF 01 MG AND 02 MG AND VARYING FREQUENCIES
     Route: 048
     Dates: start: 19990920, end: 20080929
  20. RISPERDAL [Suspect]
     Active Substance: RISPERIDONE
     Indication: PSYCHOMOTOR HYPERACTIVITY
     Route: 048
     Dates: start: 20091019
  21. RISPERIDONE. [Suspect]
     Active Substance: RISPERIDONE
     Indication: PSYCHOMOTOR HYPERACTIVITY
     Route: 065
  22. RISPERDAL [Suspect]
     Active Substance: RISPERIDONE
     Indication: PSYCHOMOTOR HYPERACTIVITY
     Dosage: VARYING DOSES OF UNSPECIFIED DOSE AND 02 MG VARYING FREQUENCIES INCLUDED (UNSPECIFIED DOSE AND BID)
     Route: 048
     Dates: start: 20100809, end: 20101204
  23. RISPERIDONE. [Suspect]
     Active Substance: RISPERIDONE
     Indication: DISTURBANCE IN ATTENTION
     Route: 048
     Dates: start: 20081106
  24. RISPERIDONE. [Suspect]
     Active Substance: RISPERIDONE
     Indication: DISTURBANCE IN ATTENTION
     Route: 065
     Dates: start: 20110812, end: 20111117
  25. RISPERIDONE. [Suspect]
     Active Substance: RISPERIDONE
     Indication: IMPULSIVE BEHAVIOUR
     Route: 065
  26. RISPERIDONE. [Suspect]
     Active Substance: RISPERIDONE
     Indication: IMPULSIVE BEHAVIOUR
     Route: 065
     Dates: start: 20090105
  27. RISPERDAL [Suspect]
     Active Substance: RISPERIDONE
     Indication: DISTURBANCE IN ATTENTION
     Route: 048
     Dates: start: 20091019
  28. RISPERDAL [Suspect]
     Active Substance: RISPERIDONE
     Indication: DISTURBANCE IN ATTENTION
     Dosage: VARYING FREQUENCIES NOTED(HALF EVERY MORNING (QAM) AND ONE EVERY HOUR OF SLEEP (QHS)/ ONE EVERY QHS)
     Route: 048
     Dates: start: 20111216, end: 20120127
  29. RISPERDAL [Suspect]
     Active Substance: RISPERIDONE
     Indication: IMPULSIVE BEHAVIOUR
     Dosage: VARYING DOSES OF UNSPECIFIED DOSE AND 02 MG VARYING FREQUENCIES INCLUDED (UNSPECIFIED DOSE AND BID)
     Route: 048
     Dates: start: 20110701, end: 20110713
  30. RISPERIDONE. [Suspect]
     Active Substance: RISPERIDONE
     Indication: IMPULSIVE BEHAVIOUR
     Route: 048
     Dates: start: 20081106
  31. RISPERIDONE. [Suspect]
     Active Substance: RISPERIDONE
     Indication: DISTURBANCE IN ATTENTION
     Route: 065
     Dates: start: 20090105
  32. RISPERIDONE. [Suspect]
     Active Substance: RISPERIDONE
     Indication: PSYCHOMOTOR HYPERACTIVITY
     Route: 065
     Dates: start: 20090105
  33. RISPERIDONE. [Suspect]
     Active Substance: RISPERIDONE
     Indication: PSYCHOMOTOR HYPERACTIVITY
     Route: 065
     Dates: start: 20110812, end: 20111117
  34. RISPERDAL [Suspect]
     Active Substance: RISPERIDONE
     Indication: IMPULSIVE BEHAVIOUR
     Dosage: VARYING FREQUENCIES NOTED(HALF EVERY MORNING (QAM) AND ONE EVERY HOUR OF SLEEP (QHS)/ ONE EVERY QHS)
     Route: 048
     Dates: start: 20111216, end: 20120127
  35. RISPERDAL [Suspect]
     Active Substance: RISPERIDONE
     Indication: IMPULSIVE BEHAVIOUR
     Dosage: VARYING DOSES OF 01 MG AND 02 MG AND VARYING FREQUENCIES
     Route: 048
     Dates: start: 19990920, end: 20080929
  36. RISPERIDONE. [Suspect]
     Active Substance: RISPERIDONE
     Indication: DISTURBANCE IN ATTENTION
     Route: 048
     Dates: end: 20120127
  37. RISPERIDONE. [Suspect]
     Active Substance: RISPERIDONE
     Indication: DISTURBANCE IN ATTENTION
     Dosage: VARYING DOSES OF 01 MG AND 02 MG
     Route: 065
     Dates: start: 20091117, end: 20100717
  38. RISPERIDONE. [Suspect]
     Active Substance: RISPERIDONE
     Indication: DISTURBANCE IN ATTENTION
     Route: 065
  39. RISPERIDONE. [Suspect]
     Active Substance: RISPERIDONE
     Indication: PSYCHOMOTOR HYPERACTIVITY
     Dosage: VARYING DOSES OF 01 MG AND 02 MG
     Route: 065
     Dates: start: 20091117, end: 20100717
  40. RISPERDAL [Suspect]
     Active Substance: RISPERIDONE
     Indication: PSYCHOMOTOR HYPERACTIVITY
     Dosage: VARYING FREQUENCIES NOTED(HALF EVERY MORNING (QAM) AND ONE EVERY HOUR OF SLEEP (QHS)/ ONE EVERY QHS)
     Route: 048
     Dates: start: 20111216, end: 20120127
  41. RISPERIDONE. [Suspect]
     Active Substance: RISPERIDONE
     Indication: DISTURBANCE IN ATTENTION
     Route: 048
     Dates: start: 19990920
  42. RISPERIDONE. [Suspect]
     Active Substance: RISPERIDONE
     Indication: PSYCHOMOTOR HYPERACTIVITY
     Route: 048
     Dates: start: 20081106

REACTIONS (2)
  - Emotional disorder [Unknown]
  - Gynaecomastia [Unknown]
